FAERS Safety Report 20738037 (Version 1)
Quarter: 2022Q2

REPORT INFORMATION
  Report Type: Report from Study
  Country: IT (occurrence: IT)
  Receive Date: 20220422
  Receipt Date: 20220422
  Transmission Date: 20220721
  Serious: Yes (Other)
  Sender: FDA-Public Use
  Company Number: None

PATIENT
  Age: 72 Year
  Sex: Female

DRUGS (9)
  1. METOPROLOL [Suspect]
     Active Substance: METOPROLOL
     Indication: Hypertension
     Dosage: UNIT DOSE: 2 DF, FREQUENCY TIME 1: DAY, DURATION : 2 DAYS
     Route: 048
     Dates: start: 20211028, end: 20211030
  2. HYDROCHLOROTHIAZIDE\IRBESARTAN [Suspect]
     Active Substance: HYDROCHLOROTHIAZIDE\IRBESARTAN
     Indication: Hypertension
     Dosage: IRBESARTAN/IDROCLOROTIAZIDE, UNIT DOSE: 1 DF, FREQUENCY TIME : 1 DAY, DURATION : 302 DAYS
     Route: 048
     Dates: start: 20210101, end: 20211030
  3. METHOTREXATE SODIUM [Concomitant]
     Active Substance: METHOTREXATE SODIUM
     Indication: Rheumatoid arthritis
     Dosage: UNIT DOSE: 7.5 MG
  4. HYDROXYCHLOROQUINE SULFATE [Concomitant]
     Active Substance: HYDROXYCHLOROQUINE SULFATE
     Indication: Rheumatoid arthritis
     Dosage: UNIT DOSE: 200 MG
  5. METFORMIN MYLAN ITALY [Concomitant]
     Indication: Type 2 diabetes mellitus
     Dosage: UNIT DOSE: 1500 MG, METFORMINA MYLAN ITALIA
  6. ALLOPURINOL [Concomitant]
     Active Substance: ALLOPURINOL
     Dosage: UNIT DOSE: 300 MG
  7. FOLIC ACID [Concomitant]
     Active Substance: FOLIC ACID
  8. GLIMEPIRIDE [Concomitant]
     Active Substance: GLIMEPIRIDE
     Indication: Type 2 diabetes mellitus
     Dosage: UNIT DOSE: 2 MG
  9. CHOLECALCIFEROL [Concomitant]
     Active Substance: CHOLECALCIFEROL

REACTIONS (2)
  - Drug ineffective [Recovering/Resolving]
  - Hypertensive crisis [Recovering/Resolving]

NARRATIVE: CASE EVENT DATE: 20211030
